FAERS Safety Report 25057009 (Version 1)
Quarter: 2025Q1

REPORT INFORMATION
  Report Type: Spontaneous
  Country: JP (occurrence: JP)
  Receive Date: 20250310
  Receipt Date: 20250310
  Transmission Date: 20250409
  Serious: Yes (Hospitalization, Other)
  Sender: MERCK SHARP & DOHME LLC
  Company Number: JP-009507513-2261204

PATIENT
  Age: 8 Decade
  Sex: Male

DRUGS (2)
  1. KEYTRUDA [Suspect]
     Active Substance: PEMBROLIZUMAB
     Indication: Non-small cell lung cancer
     Dosage: 200 MG Q3W, 3 COURSES
     Route: 041
     Dates: start: 202411, end: 202412
  2. KEYTRUDA [Suspect]
     Active Substance: PEMBROLIZUMAB
     Indication: Non-small cell lung cancer
     Dosage: 200 MG Q3W, 3 COURSES
     Route: 041
     Dates: start: 202501

REACTIONS (2)
  - Cholangitis [Recovering/Resolving]
  - Oesophagobronchial fistula [Unknown]

NARRATIVE: CASE EVENT DATE: 20241201
